FAERS Safety Report 10221774 (Version 1)
Quarter: 2014Q2

REPORT INFORMATION
  Report Type: Report from Study
  Country: GB (occurrence: GB)
  Receive Date: 20140606
  Receipt Date: 20140606
  Transmission Date: 20141212
  Serious: Yes (Hospitalization, Other)
  Sender: FDA-Public Use
  Company Number: GB-BIOMARINAP-GB-2013-100979

PATIENT
  Age: 2 Year
  Sex: Female
  Weight: 11.3 kg

DRUGS (9)
  1. NAGLAZYME [Suspect]
     Indication: MUCOPOLYSACCHARIDOSIS VI
     Dosage: 10 MG, QW
     Route: 041
     Dates: start: 20120807
  2. CHLORPHENAMINE [Concomitant]
     Indication: PREMEDICATION
     Dosage: 1 MG, UNK
     Route: 048
  3. PARACETAMOL [Concomitant]
     Indication: PREMEDICATION
     Dosage: 150 MG, UNK
     Route: 048
  4. ALFENTANIL [Concomitant]
     Indication: PRODUCT USED FOR UNKNOWN INDICATION
     Dosage: 150 ?G, UNK
     Route: 042
  5. PROPOFOL [Concomitant]
     Indication: PRODUCT USED FOR UNKNOWN INDICATION
     Dosage: 50 ?G, UNK
     Route: 042
  6. MORPHINE [Concomitant]
     Indication: PRODUCT USED FOR UNKNOWN INDICATION
     Dosage: 275 ?G, UNK
     Route: 042
  7. ONDANSETRON [Concomitant]
     Indication: PRODUCT USED FOR UNKNOWN INDICATION
     Dosage: UNK
     Route: 042
  8. PARACETAMOL [Concomitant]
     Indication: PRODUCT USED FOR UNKNOWN INDICATION
     Dosage: 165 MG, UNK
     Route: 042
  9. CO-AMOXICLAV                       /00756801/ [Concomitant]
     Indication: PRODUCT USED FOR UNKNOWN INDICATION
     Dosage: 330 MG, UNK
     Route: 042

REACTIONS (1)
  - Sleep apnoea syndrome [Recovered/Resolved]
